FAERS Safety Report 8990312 (Version 2)
Quarter: 2013Q1

REPORT INFORMATION
  Report Type: Spontaneous
  Country: DK (occurrence: JP)
  Receive Date: 20121228
  Receipt Date: 20130103
  Transmission Date: 20140127
  Serious: Yes (Other)
  Sender: FDA-Public Use
  Company Number: JP-FRI-1000041292

PATIENT
  Sex: Female

DRUGS (4)
  1. LEXAPRO [Suspect]
     Indication: DEPRESSION
     Route: 048
     Dates: start: 20120221, end: 20120222
  2. GANATON [Concomitant]
     Route: 048
  3. LENDORMIN [Concomitant]
     Route: 048
  4. DEPAS [Concomitant]
     Route: 048

REACTIONS (4)
  - Loss of consciousness [Recovered/Resolved]
  - Initial insomnia [Unknown]
  - Asthenia [Unknown]
  - Malaise [Unknown]
